FAERS Safety Report 8409718-7 (Version None)
Quarter: 2012Q2

REPORT INFORMATION
  Report Type: 
  Country: None (occurrence: None)
  Receive Date: 20120529
  Receipt Date: 20120522
  Transmission Date: 20120825
  Serious: Yes (Hospitalization, Other)
  Sender: FDA-Public Use
  Company Number: 2010SP062574

PATIENT
  Age: 42 Year
  Sex: Female
  Weight: 57.1532 kg

DRUGS (3)
  1. NUVARING [Suspect]
     Indication: CONTRACEPTION
     Dates: start: 20060101, end: 20081204
  2. NUVARING [Suspect]
     Indication: MENSTRUAL DISORDER
     Dates: start: 20060101, end: 20081204
  3. IMIPRAMINE [Suspect]
     Indication: MIGRAINE
     Dates: end: 20081204

REACTIONS (62)
  - GASTROINTESTINAL VIRAL INFECTION [None]
  - MIGRAINE [None]
  - NEUROLOGICAL SYMPTOM [None]
  - ABDOMINAL DISCOMFORT [None]
  - FEAR [None]
  - WEIGHT INCREASED [None]
  - MENTAL DISORDER [None]
  - IMPAIRED WORK ABILITY [None]
  - FEELING HOT [None]
  - AUTONOMIC NERVOUS SYSTEM IMBALANCE [None]
  - ANAPHYLACTIC SHOCK [None]
  - EMOTIONAL DISORDER [None]
  - BACK PAIN [None]
  - LIPOSUCTION [None]
  - ARTHRALGIA [None]
  - ASTHMA [None]
  - PRESYNCOPE [None]
  - HYPOAESTHESIA [None]
  - DIZZINESS [None]
  - PAIN OF SKIN [None]
  - RED BLOOD CELL SEDIMENTATION RATE INCREASED [None]
  - INTERVERTEBRAL DISC DEGENERATION [None]
  - TRICUSPID VALVE INCOMPETENCE [None]
  - BLOOD PRESSURE SYSTOLIC INCREASED [None]
  - HAEMOGLOBIN DECREASED [None]
  - CEREBROVASCULAR ACCIDENT [None]
  - ACCIDENT AT WORK [None]
  - FALL [None]
  - BUNION OPERATION [None]
  - HYPERTENSION [None]
  - ANAEMIA [None]
  - FATIGUE [None]
  - SYNCOPE [None]
  - DIARRHOEA [None]
  - ANXIETY [None]
  - LIPIDS INCREASED [None]
  - TRANSIENT ISCHAEMIC ATTACK [None]
  - BREAST CYST [None]
  - VOMITING [None]
  - AMNESIA [None]
  - MUSCULOSKELETAL PAIN [None]
  - ALOPECIA [None]
  - PALPITATIONS [None]
  - SOMNAMBULISM [None]
  - LOSS OF CONSCIOUSNESS [None]
  - COGNITIVE DISORDER [None]
  - UTERINE POLYP [None]
  - NAUSEA [None]
  - DEPRESSION [None]
  - NECK PAIN [None]
  - BACK INJURY [None]
  - DRUG INEFFECTIVE [None]
  - SPINAL VASCULAR DISORDER [None]
  - VAGINAL DISCHARGE [None]
  - MITRAL VALVE INCOMPETENCE [None]
  - ORTHOSTATIC HYPOTENSION [None]
  - HAEMATOCRIT DECREASED [None]
  - DYSPEPSIA [None]
  - LIGAMENT SPRAIN [None]
  - MULTIPLE INJURIES [None]
  - RHEUMATOID FACTOR INCREASED [None]
  - DRUG HYPERSENSITIVITY [None]
